FAERS Safety Report 8887383 (Version 2)
Quarter: 2012Q4

REPORT INFORMATION
  Report Type: 
  Country: JP (occurrence: JP)
  Receive Date: 20121105
  Receipt Date: 20121119
  Transmission Date: 20130627
  Serious: Yes (Hospitalization)
  Sender: FDA-Public Use
  Company Number: JP-BRISTOL-MYERS SQUIBB COMPANY-17086331

PATIENT
  Age: 77 Year
  Sex: Female

DRUGS (4)
  1. ORENCIA FOR INJ 250 MG/VIAL [Suspect]
     Indication: RHEUMATIC DISORDER
     Route: 041
     Dates: start: 20120404, end: 20120905
  2. STEROIDS [Concomitant]
     Route: 048
  3. AZULFIDINE [Concomitant]
     Route: 048
  4. CALONAL [Concomitant]
     Route: 048

REACTIONS (1)
  - Renal impairment [Recovered/Resolved]
